FAERS Safety Report 4771745-9 (Version None)
Quarter: 2005Q3

REPORT INFORMATION
  Report Type: 
  Country: None (occurrence: None)
  Receive Date: 20050916
  Receipt Date: 20050902
  Transmission Date: 20060218
  Serious: Yes (Hospitalization, Disabling)
  Sender: FDA-Public Use
  Company Number: US-AMGEN-US149611

PATIENT
  Sex: Male

DRUGS (4)
  1. ENBREL [Suspect]
     Indication: RHEUMATOID ARTHRITIS
     Route: 058
     Dates: start: 20030326, end: 20050602
  2. LIPITOR [Concomitant]
     Dates: start: 19990101
  3. CARDIZEM CD [Concomitant]
  4. LEXAPRO [Concomitant]

REACTIONS (1)
  - PERIPHERAL VASCULAR DISORDER [None]
